FAERS Safety Report 5674223-8 (Version None)
Quarter: 2008Q1

REPORT INFORMATION
  Report Type: 
  Country: None (occurrence: None)
  Receive Date: 20080320
  Receipt Date: 20080311
  Transmission Date: 20080703
  Serious: Yes (Other)
  Sender: FDA-Public Use
  Company Number: US-ROCHE-552634

PATIENT
  Age: 67 Year
  Sex: Male

DRUGS (4)
  1. TAMIFLU [Suspect]
     Route: 048
     Dates: start: 20080201, end: 20080201
  2. 1 CONCOMITANT DRUG [Concomitant]
     Indication: BLOOD PRESSURE MANAGEMENT
  3. 1 CONCOMITANT DRUG [Concomitant]
     Indication: BLOOD CHOLESTEROL ABNORMAL
  4. 1 CONCOMITANT DRUG [Concomitant]
     Indication: THYROID DISORDER

REACTIONS (3)
  - DELUSION [None]
  - FEELING ABNORMAL [None]
  - UNRESPONSIVE TO STIMULI [None]
